FAERS Safety Report 13863203 (Version 1)
Quarter: 2017Q3

REPORT INFORMATION
  Report Type: Spontaneous
  Country: AU (occurrence: AU)
  Receive Date: 20170814
  Receipt Date: 20170814
  Transmission Date: 20171127
  Serious: Yes (Other)
  Sender: FDA-Public Use
  Company Number: AU-CONCORDIA PHARMACEUTICALS INC.-GSH201708-004503

PATIENT

DRUGS (4)
  1. TRANYLCYPROMINE [Suspect]
     Active Substance: TRANYLCYPROMINE
  2. PIMOZIDE. [Suspect]
     Active Substance: PIMOZIDE
  3. DIAZEPAM. [Suspect]
     Active Substance: DIAZEPAM
  4. ALPRAZOLAM. [Suspect]
     Active Substance: ALPRAZOLAM

REACTIONS (4)
  - Atrioventricular septal defect [Unknown]
  - Hypertelorism of orbit [Unknown]
  - Dysmorphism [Unknown]
  - Maternal exposure during pregnancy [Unknown]
